FAERS Safety Report 8107451-2 (Version None)
Quarter: 2012Q1

REPORT INFORMATION
  Report Type: 
  Country: None (occurrence: None)
  Receive Date: 20120202
  Receipt Date: 20120127
  Transmission Date: 20120608
  Serious: Yes (Hospitalization)
  Sender: FDA-Public Use
  Company Number: US-BAYER-2012-006763

PATIENT
  Age: 74 Year
  Sex: Female

DRUGS (6)
  1. VENTAVIS [Suspect]
     Indication: PULMONARY ARTERIAL HYPERTENSION
     Dosage: UNK
     Route: 055
     Dates: start: 20100209
  2. REVATIO [Concomitant]
     Indication: PULMONARY HYPERTENSION
  3. TRACLEER [Suspect]
     Indication: PULMONARY ARTERIAL HYPERTENSION
     Dosage: UNK
     Route: 055
     Dates: start: 20100908
  4. REVATIO [Concomitant]
     Indication: PULMONARY FIBROSIS
  5. COUMADIN [Concomitant]
     Indication: PULMONARY HYPERTENSION
  6. COUMADIN [Concomitant]
     Indication: PULMONARY FIBROSIS

REACTIONS (2)
  - FLUID RETENTION [None]
  - DYSPNOEA [None]
